FAERS Safety Report 23827889 (Version 2)
Quarter: 2024Q4

REPORT INFORMATION
  Report Type: Spontaneous
  Country: US (occurrence: US)
  Receive Date: 20240507
  Receipt Date: 20241124
  Transmission Date: 20250114
  Serious: Yes (Hospitalization)
  Sender: OPKO HEALTH
  Company Number: US-OPKO PHARMACEUTICALS, LLC.-2024OPK00095

PATIENT
  Age: 89 Year
  Sex: Male
  Weight: 55.782 kg

DRUGS (7)
  1. RAYALDEE [Suspect]
     Active Substance: CALCIFEDIOL
     Indication: Chronic kidney disease
     Dosage: 60 MCG, QD
     Route: 048
     Dates: start: 20201023
  2. RAYALDEE [Suspect]
     Active Substance: CALCIFEDIOL
     Indication: Hyperparathyroidism secondary
  3. RAYALDEE [Suspect]
     Active Substance: CALCIFEDIOL
     Indication: Vitamin D deficiency
  4. FERROUS SULFATE [Concomitant]
     Active Substance: FERROUS SULFATE
     Dosage: 325 MG
  5. METOPROLOL TARTRATE [Concomitant]
     Active Substance: METOPROLOL TARTRATE
     Dosage: 25 MG
  6. NYSTATIN [Concomitant]
     Active Substance: NYSTATIN
     Dosage: 100000 ARBITRARY UNIT PER MILLILITRE
  7. PREDNISONE [Concomitant]
     Active Substance: PREDNISONE
     Dosage: 20 MG

REACTIONS (1)
  - Gastroenteritis viral [Unknown]

NARRATIVE: CASE EVENT DATE: 20240110
